FAERS Safety Report 4767236-1 (Version None)
Quarter: 2005Q3

REPORT INFORMATION
  Report Type: 
  Country: None (occurrence: None)
  Receive Date: 20050909
  Receipt Date: 20050909
  Transmission Date: 20060218
  Serious: Yes (Life-Threatening)
  Sender: FDA-Public Use
  Company Number: None

PATIENT
  Age: 81 Year
  Sex: Female
  Weight: 77.9 kg

DRUGS (6)
  1. DROTRECOGIN [Suspect]
     Indication: ESCHERICHIA SEPSIS
     Dosage: 24 MCG/KG/HR (1848MCG/HR)
     Dates: start: 20050614, end: 20050618
  2. PANTOPRAZOLE [Concomitant]
  3. LEVOFLOXACIN [Concomitant]
  4. NOREPINEPHRINE [Concomitant]
  5. METRONIDAZOLE [Concomitant]
  6. CEFTRIAXONE [Concomitant]

REACTIONS (4)
  - ANGIOPATHY [None]
  - GASTRIC ULCER [None]
  - GASTRITIS HAEMORRHAGIC [None]
  - GASTROINTESTINAL HAEMORRHAGE [None]
